FAERS Safety Report 25064841 (Version 1)
Quarter: 2025Q1

REPORT INFORMATION
  Report Type: Spontaneous
  Country: US (occurrence: US)
  Receive Date: 20250311
  Receipt Date: 20250311
  Transmission Date: 20250409
  Serious: Yes (Congenital Anomaly)
  Sender: JOHNSON AND JOHNSON
  Company Number: US-JNJFOC-20250324015

PATIENT
  Sex: Male

DRUGS (1)
  1. STELARA [Suspect]
     Active Substance: USTEKINUMAB
     Indication: Colitis ulcerative
     Route: 064
     Dates: start: 2022

REACTIONS (5)
  - Tethered oral tissue [Recovered/Resolved]
  - Tethered oral tissue [Recovered/Resolved]
  - Foetal exposure during pregnancy [Recovered/Resolved]
  - Dyspepsia [Recovered/Resolved]
  - Food allergy [Recovered/Resolved]

NARRATIVE: CASE EVENT DATE: 20220101
